FAERS Safety Report 24209881 (Version 1)
Quarter: 2024Q3

REPORT INFORMATION
  Report Type: Spontaneous
  Country: US (occurrence: US)
  Receive Date: 20240814
  Receipt Date: 20240814
  Transmission Date: 20241016
  Serious: No
  Sender: AEGERION
  Company Number: US-AMRYT PHARMACEUTICALS DAC-AEGR006673

PATIENT
  Sex: Female
  Weight: 37.1 kg

DRUGS (4)
  1. JUXTAPID [Suspect]
     Active Substance: LOMITAPIDE MESYLATE
     Indication: Type IIa hyperlipidaemia
     Dosage: 5 MILLIGRAM, QD AT BEDTIME
     Route: 048
     Dates: start: 20231001, end: 20231014
  2. EVKEEZA [EVINACUMAB] [Concomitant]
     Indication: Type IIa hyperlipidaemia
     Dosage: 15 MG/KG, EVERY 4 WEEK
     Route: 042
     Dates: start: 20230914
  3. ZETIA [Concomitant]
     Active Substance: EZETIMIBE
     Indication: Type IIa hyperlipidaemia
     Dosage: 10 MILLIGRAM, QD
     Route: 048
  4. VITAMIN E [Concomitant]
     Active Substance: .ALPHA.-TOCOPHEROL
     Indication: Product used for unknown indication

REACTIONS (5)
  - Abdominal discomfort [Recovered/Resolved]
  - Nausea [Unknown]
  - Intentional product use issue [Unknown]
  - Off label use [Unknown]
  - Therapy interrupted [Unknown]
